FAERS Safety Report 20758375 (Version 1)
Quarter: 2022Q2

REPORT INFORMATION
  Report Type: Spontaneous
  Country: CA (occurrence: CA)
  Receive Date: 20220427
  Receipt Date: 20220427
  Transmission Date: 20220720
  Serious: Yes (Death)
  Sender: FDA-Public Use
  Company Number: CA-PFIZER INC-202200426227

PATIENT
  Age: 61 Year
  Sex: Female

DRUGS (2)
  1. IBRANCE [Suspect]
     Active Substance: PALBOCICLIB
     Indication: Breast cancer metastatic
     Dosage: 125 MG OD FOR 3 WEEKS ON, 1 WEEK OFF
     Route: 048
     Dates: start: 20220323
  2. LETROZOLE [Concomitant]
     Active Substance: LETROZOLE
     Indication: Metastatic neoplasm
     Dosage: 2.5 MG
     Route: 048
     Dates: start: 20220210

REACTIONS (3)
  - Death [Fatal]
  - Platelet count decreased [Unknown]
  - Neoplasm progression [Unknown]
